FAERS Safety Report 23552081 (Version 1)
Quarter: 2024Q1

REPORT INFORMATION
  Report Type: Report from Study
  Country: US (occurrence: US)
  Receive Date: 20240222
  Receipt Date: 20240222
  Transmission Date: 20240410
  Serious: Yes (Other)
  Sender: FDA-Public Use
  Company Number: US-UPSHER-SMITH LABORATORIES, LLC-2024USL00161

PATIENT
  Sex: Female
  Weight: 38.095 kg

DRUGS (19)
  1. KLOR-CON [Suspect]
     Active Substance: POTASSIUM CHLORIDE
     Dosage: UNK
  2. REMODULIN [Suspect]
     Active Substance: TREPROSTINIL
     Indication: Pulmonary arterial hypertension
     Dosage: UNK
     Route: 041
     Dates: start: 20231023
  3. REMODULIN [Suspect]
     Active Substance: TREPROSTINIL
     Dosage: 0.093 ?G/KG, CONTINUING
     Route: 041
  4. REMODULIN [Suspect]
     Active Substance: TREPROSTINIL
     Dosage: 102 ?G/KG, CONTINUING
     Route: 041
     Dates: start: 202401
  5. REMODULIN [Suspect]
     Active Substance: TREPROSTINIL
     Dosage: UNK
     Route: 041
  6. GAVISCON [ALUMINIUM HYDROXIDE;MAGNESIUM CARBONATE] [Concomitant]
  7. IBUPROFEN [Concomitant]
     Active Substance: IBUPROFEN
  8. TYLENOL [Concomitant]
     Active Substance: ACETAMINOPHEN
  9. SODIUM CHLORIDE [Concomitant]
     Active Substance: SODIUM CHLORIDE
  10. ARNICA (PLANTA TOTA) ^WELEDA^ ESSENZ [Concomitant]
  11. VITAMIN D3 [Concomitant]
     Active Substance: CHOLECALCIFEROL
  12. CHLORPHENIRAMINE MALEATE [Concomitant]
     Active Substance: CHLORPHENIRAMINE MALEATE
  13. ALOE VERA;LIDOCAINE [Concomitant]
  14. DIAZEPAM [Concomitant]
     Active Substance: DIAZEPAM
  15. SPIRONOLACTONE [Concomitant]
     Active Substance: SPIRONOLACTONE
  16. OXYGEN [Concomitant]
     Active Substance: OXYGEN
  17. TORSEMIDE [Concomitant]
     Active Substance: TORSEMIDE
  18. LORATADINE [Concomitant]
     Active Substance: LORATADINE
  19. VITAMIN C [Concomitant]
     Active Substance: ASCORBIC ACID

REACTIONS (1)
  - Dyspnoea [Unknown]
